FAERS Safety Report 10280563 (Version 4)
Quarter: 2014Q3

REPORT INFORMATION
  Report Type: Spontaneous
  Country: US (occurrence: US)
  Receive Date: 20140707
  Receipt Date: 20140804
  Transmission Date: 20150326
  Serious: Yes (Other)
  Sender: FDA-Public Use
  Company Number: PHEH2014US008884

PATIENT
  Sex: Female

DRUGS (4)
  1. MIDRIN [Suspect]
     Active Substance: ACETAMINOPHEN\DICHLORALPHENAZONE\ISOMETHEPTENE
     Indication: MIGRAINE
     Dosage: 2 DF, UNK
     Dates: start: 200008
  2. IMITREX [Suspect]
     Active Substance: SUMATRIPTAN\SUMATRIPTAN SUCCINATE
     Indication: MIGRAINE
     Dosage: UNK UKN, UNK
  3. ESTRADOT [Suspect]
     Active Substance: ESTRADIOL
     Indication: MIGRAINE
     Dosage: 100 UG, BIW
     Route: 062
     Dates: start: 2003
  4. MEDROXYPROGESTERONE [Concomitant]
     Active Substance: MEDROXYPROGESTERONE
     Dosage: 7.5 MG, QD

REACTIONS (3)
  - Tay-Sachs disease [Not Recovered/Not Resolved]
  - Drug ineffective [Unknown]
  - Migraine [Unknown]

NARRATIVE: CASE EVENT DATE: 2007
